FAERS Safety Report 10926966 (Version 1)
Quarter: 2015Q1

REPORT INFORMATION
  Report Type: Spontaneous
  Country: NL (occurrence: None)
  Receive Date: 20150316
  Receipt Date: 20150316
  Transmission Date: 20150721
  Serious: Yes (Hospitalization)
  Sender: FDA-Public Use
  Company Number: 8015215

PATIENT
  Age: 52 Year
  Sex: Female

DRUGS (1)
  1. EUTHYROX (LEVOTHYROXINE SODIUM) (TABLET) (LEVOTHYROXINE SODIUM) ,170465 [Suspect]
     Active Substance: LEVOTHYROXINE SODIUM
     Indication: THYROID DISORDER
     Dates: start: 2010

REACTIONS (6)
  - Nervousness [None]
  - Thinking abnormal [None]
  - Hyperhidrosis [None]
  - Headache [None]
  - Tachycardia [None]
  - Chest pain [None]

NARRATIVE: CASE EVENT DATE: 2010
